FAERS Safety Report 17670461 (Version 7)
Quarter: 2025Q2

REPORT INFORMATION
  Report Type: Report from Study
  Country: GB (occurrence: GB)
  Receive Date: 20200415
  Receipt Date: 20250630
  Transmission Date: 20250717
  Serious: Yes (Hospitalization, Other)
  Sender: ROCHE
  Company Number: GB-ROCHE-2579704

PATIENT
  Age: 56 Year
  Sex: Female
  Weight: 38 kg

DRUGS (5)
  1. OCREVUS [Suspect]
     Active Substance: OCRELIZUMAB
     Indication: Relapsing-remitting multiple sclerosis
     Dosage: FIRST CYCLE TWO - BUT DELAYED BY 7 MONTHS
     Route: 042
  2. OCREVUS [Suspect]
     Active Substance: OCRELIZUMAB
     Indication: Primary progressive multiple sclerosis
     Route: 042
  3. OCREVUS [Suspect]
     Active Substance: OCRELIZUMAB
     Route: 042
  4. OCREVUS [Suspect]
     Active Substance: OCRELIZUMAB
     Route: 042
  5. OCREVUS [Suspect]
     Active Substance: OCRELIZUMAB
     Route: 042

REACTIONS (11)
  - Urinary tract infection [Recovered/Resolved]
  - Sepsis [Unknown]
  - Disturbance in attention [Unknown]
  - Decreased appetite [Unknown]
  - Mobility decreased [Unknown]
  - Urinary incontinence [Unknown]
  - Presyncope [Recovered/Resolved]
  - Huntington^s disease [Not Recovered/Not Resolved]
  - Fall [Unknown]
  - Erythema [Not Recovered/Not Resolved]
  - Weight decreased [Not Recovered/Not Resolved]

NARRATIVE: CASE EVENT DATE: 20201109
